FAERS Safety Report 18105307 (Version 1)
Quarter: 2020Q3

REPORT INFORMATION
  Report Type: Report from Study
  Country: MX (occurrence: MX)
  Receive Date: 20200803
  Receipt Date: 20200803
  Transmission Date: 20201103
  Serious: Yes (Other)
  Sender: FDA-Public Use
  Company Number: MX-UCBSA-2020029340

PATIENT
  Sex: Female
  Weight: 27 kg

DRUGS (2)
  1. CEREBRIN [CELECOXIB] [Concomitant]
     Indication: BODY TEMPERATURE
     Dosage: UNK
  2. LEVETIRACETAM. [Suspect]
     Active Substance: LEVETIRACETAM
     Indication: SEIZURE
     Dosage: 5 MILLILITER, 2X/DAY (BID)
     Route: 048

REACTIONS (10)
  - Intestinal ischaemia [Recovered/Resolved]
  - Nightmare [Recovered/Resolved]
  - Drug ineffective [Unknown]
  - Dental caries [Recovered/Resolved]
  - Syncope [Unknown]
  - Body temperature increased [Recovered/Resolved]
  - Hypersomnia [Recovered/Resolved]
  - Off label use [Unknown]
  - Seizure [Not Recovered/Not Resolved]
  - Tooth loss [Recovered/Resolved]
